FAERS Safety Report 5046329-8 (Version None)
Quarter: 2006Q2

REPORT INFORMATION
  Report Type: 
  Country: None (occurrence: None)
  Receive Date: 20060601
  Receipt Date: 20060315
  Transmission Date: 20061013
  Serious: No
  Sender: FDA-Public Use
  Company Number: 2006PV010326

PATIENT
  Age: 52 Year
  Sex: Female
  Weight: 97.5234 kg

DRUGS (8)
  1. BYETTA [Suspect]
     Indication: DIABETES MELLITUS NON-INSULIN-DEPENDENT
     Dosage: 5 MCG;BID;SC
     Route: 058
     Dates: start: 20060221
  2. ACTOS /USA/ [Concomitant]
  3. ARIMEDIX [Concomitant]
  4. HYDROCHLOROTHIAZIDE [Concomitant]
  5. LIPITOR [Concomitant]
  6. CENTRUM SILVER [Concomitant]
  7. ASPIRIN [Concomitant]
  8. CALCIUM GLUCONATE [Concomitant]

REACTIONS (4)
  - INJECTION SITE URTICARIA [None]
  - NASOPHARYNGITIS [None]
  - PARANASAL SINUS HYPERSECRETION [None]
  - PHARYNGOLARYNGEAL PAIN [None]
